FAERS Safety Report 19881955 (Version 2)
Quarter: 2021Q3

REPORT INFORMATION
  Report Type: Report from Study
  Country: AR (occurrence: AR)
  Receive Date: 20210924
  Receipt Date: 20210929
  Transmission Date: 20211014
  Serious: Yes (Hospitalization)
  Sender: FDA-Public Use
  Company Number: AR-SA-2021SA314154

PATIENT
  Age: 7 Year
  Sex: Male
  Weight: 21.5 kg

DRUGS (14)
  1. DEXAMETHASONE. [Suspect]
     Active Substance: DEXAMETHASONE
     Indication: B-CELL TYPE ACUTE LEUKAEMIA
     Dosage: 10 MG/M2Y,ON DAYS ?3, ?2, ?1, 1,8, 15 TO 19, 22, AND 29 TO 33
     Route: 048
     Dates: start: 20210914, end: 20210917
  2. TRIMETHOPRIM SULFAMETHOXAZOLE [Concomitant]
     Active Substance: SULFAMETHOXAZOLE\TRIMETHOPRIM
     Indication: PROPHYLAXIS
     Dosage: UNK
     Route: 048
     Dates: start: 20210907
  3. PASTA LASSAR [Concomitant]
     Indication: PROPHYLAXIS
     Dosage: UNK
     Route: 061
     Dates: start: 20210907
  4. IBUPROFEN. [Concomitant]
     Active Substance: IBUPROFEN
     Dosage: UNK
     Route: 048
     Dates: start: 20210914, end: 20210918
  5. PLATELETS [Concomitant]
     Active Substance: HUMAN PLATELET, ALLOGENIC
     Dosage: UNK
     Route: 042
     Dates: start: 20210917, end: 20210917
  6. CHLORHEXIDINE [Concomitant]
     Active Substance: CHLORHEXIDINE
     Indication: PROPHYLAXIS
     Dosage: UNK
     Route: 002
     Dates: start: 20210907
  7. ISATUXIMAB [Suspect]
     Active Substance: ISATUXIMAB
     Indication: B-CELL TYPE ACUTE LEUKAEMIA
     Dosage: 20 MG/KG, QW
     Route: 042
     Dates: start: 20210914, end: 20210914
  8. METHOTREXATE. [Concomitant]
     Active Substance: METHOTREXATE
     Indication: PROPHYLAXIS
     Dosage: UNK
     Route: 065
     Dates: start: 20210910, end: 20210910
  9. DIPHENHYDRAMINE. [Concomitant]
     Active Substance: DIPHENHYDRAMINE
     Indication: PROPHYLAXIS
     Dosage: TOTAL DAILY DOSE: 20 MG
     Route: 042
     Dates: start: 20210914, end: 20210914
  10. DEXAMETHASONE. [Concomitant]
     Active Substance: DEXAMETHASONE
     Indication: PROPHYLAXIS
     Dosage: TOTAL DAILY DOSE: 8 MG
     Route: 042
     Dates: start: 20210914, end: 20210914
  11. DEXAMETHASONE. [Concomitant]
     Active Substance: DEXAMETHASONE
     Dosage: UNK
     Route: 065
     Dates: start: 20210910, end: 20210910
  12. MONTELUKAST [Concomitant]
     Active Substance: MONTELUKAST SODIUM
     Indication: PROPHYLAXIS
     Dosage: TOTAL DAILY DOSE: 5 MG
     Dates: start: 20210914, end: 20210914
  13. CYTARABINE. [Concomitant]
     Active Substance: CYTARABINE
     Indication: PROPHYLAXIS
     Dosage: UNK
     Route: 065
     Dates: start: 20210910, end: 20210910
  14. PARACETAMOL [Concomitant]
     Active Substance: ACETAMINOPHEN
     Indication: PROPHYLAXIS
     Dosage: TOTAL DAILY DOSE: 200 MG
     Route: 048
     Dates: start: 20210914, end: 20210914

REACTIONS (1)
  - Otitis externa [Recovered/Resolved]

NARRATIVE: CASE EVENT DATE: 20210920
